FAERS Safety Report 10168913 (Version 2)
Quarter: 2014Q2

REPORT INFORMATION
  Report Type: Spontaneous
  Country: FR (occurrence: FR)
  Receive Date: 20140513
  Receipt Date: 20140513
  Transmission Date: 20141212
  Serious: Yes (Death, Hospitalization)
  Sender: FDA-Public Use
  Company Number: FR-AMGEN-FRASP2014023514

PATIENT
  Age: 48 Year
  Sex: Female
  Weight: 55 kg

DRUGS (9)
  1. XGEVA [Suspect]
     Indication: METASTASES TO BONE
     Dosage: 120 MG, QMO
     Route: 058
     Dates: start: 201401, end: 201402
  2. ELISOR [Concomitant]
     Dosage: 40 MG, QD
     Route: 048
     Dates: start: 201402
  3. AROMASINE [Concomitant]
     Dosage: 25 MG, QD
     Route: 048
     Dates: start: 201402
  4. KARDEGIC [Concomitant]
     Dosage: 75 MG, QD
     Route: 048
     Dates: start: 201401
  5. BRILIQUE [Concomitant]
     Dosage: 90 MG, QD
     Route: 048
     Dates: start: 201401
  6. CARDENSIEL [Concomitant]
     Dosage: 2.5 MG, QD
     Route: 048
     Dates: start: 201401
  7. COVERSYL                           /00790702/ [Concomitant]
     Dosage: 10 UNK, QD
  8. INEXIUM                            /01479302/ [Concomitant]
     Dosage: 20 UNK, QD
     Dates: start: 2011
  9. ATARAX                             /00058401/ [Concomitant]
     Dosage: 25 UNK, QD
     Dates: start: 201401

REACTIONS (3)
  - Neoplasm progression [Fatal]
  - Sense of oppression [Recovered/Resolved]
  - Dyspnoea [Recovered/Resolved]
